FAERS Safety Report 8167696-2 (Version None)
Quarter: 2012Q1

REPORT INFORMATION
  Report Type: 
  Country: None (occurrence: None)
  Receive Date: 20120221
  Receipt Date: 20120207
  Transmission Date: 20120608
  Serious: Yes (Hospitalization, Other)
  Sender: FDA-Public Use
  Company Number: GGEL20120200122

PATIENT
  Age: 16 Year
  Sex: Female

DRUGS (1)
  1. INDOMETHACIN [Suspect]
     Indication: HEADACHE
     Dosage: 225 MILLIGRAM, TWICE A DAY

REACTIONS (11)
  - PALPITATIONS [None]
  - VISION BLURRED [None]
  - MYOCLONUS [None]
  - EYELID PTOSIS [None]
  - EYELID OEDEMA [None]
  - DISEASE RECURRENCE [None]
  - ERYTHEMA OF EYELID [None]
  - TREATMENT FAILURE [None]
  - CSF PRESSURE INCREASED [None]
  - HEADACHE [None]
  - DRUG RESISTANCE [None]
